FAERS Safety Report 24231782 (Version 1)
Quarter: 2024Q3

REPORT INFORMATION
  Report Type: Spontaneous
  Country: IT (occurrence: IT)
  Receive Date: 20240821
  Receipt Date: 20240821
  Transmission Date: 20241017
  Serious: Yes (Other)
  Sender: RANBAXY
  Company Number: IT-SUN PHARMACEUTICAL INDUSTRIES LTD-2024R1-463682

PATIENT
  Age: 71 Year
  Sex: Male

DRUGS (3)
  1. PREDNISONE [Suspect]
     Active Substance: PREDNISONE
     Indication: Interstitial lung disease
     Dosage: 5 MILLIGRAM, DAILY
     Route: 065
  2. CANAKINUMAB [Suspect]
     Active Substance: CANAKINUMAB
     Indication: Interstitial lung disease
     Dosage: 300 MILLIGRAM EVERY 4 WEEKS
     Route: 065
  3. CYCLOSPORINE [Suspect]
     Active Substance: CYCLOSPORINE
     Indication: Interstitial lung disease
     Dosage: 300 MILLIGRAM, DAILY
     Route: 065

REACTIONS (2)
  - Condition aggravated [Unknown]
  - Hypersensitivity pneumonitis [Unknown]
